FAERS Safety Report 23486608 (Version 1)
Quarter: 2024Q1

REPORT INFORMATION
  Report Type: Spontaneous
  Country: US (occurrence: None)
  Receive Date: 20240205
  Receipt Date: 20240205
  Transmission Date: 20240410
  Serious: No
  Sender: FDA-Public Use
  Company Number: None

PATIENT
  Age: 67 Year
  Sex: Female

DRUGS (2)
  1. CALCIUM ACETATE [Suspect]
     Active Substance: CALCIUM ACETATE
  2. SEVELAMER CARBONATE [Suspect]
     Active Substance: SEVELAMER CARBONATE

REACTIONS (2)
  - Treatment failure [None]
  - Dialysis [None]

NARRATIVE: CASE EVENT DATE: 20240203
